FAERS Safety Report 14607295 (Version 3)
Quarter: 2019Q2

REPORT INFORMATION
  Report Type: Spontaneous
  Country: US (occurrence: US)
  Receive Date: 20180307
  Receipt Date: 20190411
  Transmission Date: 20190711
  Serious: No
  Sender: FDA-Public Use
  Company Number: US-PFIZER INC-2018091683

PATIENT
  Age: 70 Year
  Sex: Male
  Weight: 87.98 kg

DRUGS (5)
  1. ATORVASTIN [Concomitant]
     Active Substance: ATORVASTATIN
     Dosage: 40 MG, UNK (40 MG 1X)
     Dates: start: 2015
  2. CITALOPRAM [Concomitant]
     Active Substance: CITALOPRAM HYDROBROMIDE
     Dosage: 20 MG, UNK (20 MG 1X)
     Dates: start: 2010
  3. BACLOFEN. [Concomitant]
     Active Substance: BACLOFEN
     Dosage: 10 MG, UNK (10 MG 1X)
     Dates: start: 2016
  4. MORPHINE SULPHATE [Concomitant]
     Active Substance: MORPHINE SULFATE
     Dosage: 60 MG, UNK (60 MG 2X)
     Dates: start: 2010
  5. GABAPENTIN. [Suspect]
     Active Substance: GABAPENTIN
     Indication: MUSCLE RUPTURE
     Dosage: 1200 MG, UNK (TOOK 300 MG/300 MG/600 MG; 600 MG AT NIGHT)
     Dates: end: 2002

REACTIONS (6)
  - Dry skin [Not Recovered/Not Resolved]
  - Dysuria [Unknown]
  - Dry throat [Unknown]
  - Hyperhidrosis [Unknown]
  - Chest pain [Unknown]
  - Product use in unapproved indication [Unknown]
